FAERS Safety Report 5290668-2 (Version None)
Quarter: 2007Q2

REPORT INFORMATION
  Report Type: 
  Country: None (occurrence: None)
  Receive Date: 20070405
  Receipt Date: 20070405
  Transmission Date: 20071010
  Serious: Yes (Hospitalization)
  Sender: FDA-Public Use
  Company Number: None

PATIENT
  Age: 22 Year
  Sex: Female

DRUGS (2)
  1. GEODON [Suspect]
     Indication: SUICIDE ATTEMPT
     Dosage: 840 MG  PO
     Route: 048
     Dates: start: 20060523
  2. CITALOPRAM HYDROBROMIDE [Concomitant]

REACTIONS (3)
  - BLOOD PRESSURE DECREASED [None]
  - ELECTROCARDIOGRAM QT CORRECTED INTERVAL PROLONGED [None]
  - INCORRECT DOSE ADMINISTERED [None]
